FAERS Safety Report 7269719-1 (Version None)
Quarter: 2011Q1

REPORT INFORMATION
  Report Type: 
  Country: None (occurrence: None)
  Receive Date: 20110124
  Receipt Date: 20110114
  Transmission Date: 20110831
  Serious: Yes (Death, Other)
  Sender: FDA-Public Use
  Company Number: TAJPN-11-0001

PATIENT
  Age: 56 Year
  Sex: Female

DRUGS (1)
  1. ABRAXANE [Suspect]
     Indication: BREAST CANCER
     Dosage: (260 MG/M2)
     Dates: start: 20101207, end: 20101207

REACTIONS (8)
  - WHITE BLOOD CELL COUNT INCREASED [None]
  - BREAST CANCER RECURRENT [None]
  - RENAL IMPAIRMENT [None]
  - SOMNOLENCE [None]
  - HEART RATE INCREASED [None]
  - HYPERKALAEMIA [None]
  - METASTASES TO CENTRAL NERVOUS SYSTEM [None]
  - MALIGNANT PLEURAL EFFUSION [None]
